FAERS Safety Report 15001213 (Version 1)
Quarter: 2018Q2

REPORT INFORMATION
  Report Type: Spontaneous
  Country: US (occurrence: US)
  Receive Date: 20180523
  Receipt Date: 20180523
  Transmission Date: 20180711
  Serious: Yes (Death)
  Sender: FDA-Public Use
  Company Number: None

PATIENT
  Sex: Male

DRUGS (1)
  1. TOBRAMYCIN. [Suspect]
     Active Substance: TOBRAMYCIN
     Indication: RESPIRATORY DISTRESS
     Dosage: ?          OTHER ROUTE:INHALE VIA NEBULIZER?
     Route: 055
     Dates: start: 20180213

REACTIONS (1)
  - Death [None]
